FAERS Safety Report 20085188 (Version 2)
Quarter: 2022Q1

REPORT INFORMATION
  Report Type: Report from Study
  Country: US (occurrence: US)
  Receive Date: 20211118
  Receipt Date: 20220209
  Transmission Date: 20220424
  Serious: No
  Sender: FDA-Public Use
  Company Number: US-HORIZON THERAPEUTICS-HZN-2021-005300

PATIENT
  Sex: Female

DRUGS (2)
  1. TEPEZZA [Suspect]
     Active Substance: TEPROTUMUMAB-TRBW
     Indication: Endocrine ophthalmopathy
     Dosage: FIRST INFUSION
     Route: 042
     Dates: start: 20210504
  2. TEPEZZA [Suspect]
     Active Substance: TEPROTUMUMAB-TRBW
     Dosage: 8TH INFUSION
     Route: 042

REACTIONS (8)
  - Nail disorder [Unknown]
  - Nail bed bleeding [Unknown]
  - Onychoclasis [Unknown]
  - Dysarthria [Unknown]
  - Diarrhoea [Unknown]
  - Alopecia [Unknown]
  - Muscle spasms [Unknown]
  - Drug ineffective [Unknown]
